FAERS Safety Report 10970072 (Version 1)
Quarter: 2015Q1

REPORT INFORMATION
  Report Type: Spontaneous
  Country: None (occurrence: None)
  Receive Date: 20150226
  Receipt Date: 20150226
  Transmission Date: 20150721
  Serious: No
  Sender: FDA-Public Use
  Company Number: TPA2009A01495

PATIENT
  Age: 74 Year
  Sex: Male
  Weight: 217.5 kg

DRUGS (8)
  1. LEVOTHROID (LEVOTHYROXIN SODIUM) [Concomitant]
  2. COLCHICINE (COLCHICINE) [Concomitant]
     Active Substance: COLCHICINE
  3. ALLOPURINOL (ALLOPURINOL) [Concomitant]
     Active Substance: ALLOPURINOL
  4. ULORIC [Suspect]
     Active Substance: FEBUXOSTAT
     Indication: GOUT
     Route: 048
     Dates: start: 20090529
  5. TEKTURNA (RENIN-AN-GIOTENSIN SYSTEM, AGENTS ACTING ON) [Concomitant]
  6. ASPIRIN (ACETYLSALICYLIC ACID) [Concomitant]
     Active Substance: ASPIRIN
  7. FUROSEMIDE (FUROSEMIDE) [Concomitant]
     Active Substance: FUROSEMIDE
  8. COREG [Concomitant]
     Active Substance: CARVEDILOL

REACTIONS (4)
  - Gout [None]
  - Muscle fatigue [None]
  - Gait disturbance [None]
  - Movement disorder [None]

NARRATIVE: CASE EVENT DATE: 20090529
